FAERS Safety Report 5054005-0 (Version None)
Quarter: 2006Q3

REPORT INFORMATION
  Report Type: 
  Country: None (occurrence: None)
  Receive Date: 20060713
  Receipt Date: 20060629
  Transmission Date: 20061208
  Serious: Yes (Hospitalization)
  Sender: FDA-Public Use
  Company Number: 2006-02660

PATIENT
  Age: 84 Year
  Sex: Female
  Weight: 61 kg

DRUGS (3)
  1. KENTERA (WATSON LABORATORIES (OXYBUTYNIN) TRANSDERMAL  PATCH, 3.9MG [Suspect]
     Indication: URGE INCONTINENCE
     Dosage: 3.9 PATCH, DAILY, TRANSDERMAL
     Route: 062
     Dates: start: 20060406, end: 20060430
  2. BISOPROLOL FUMARATE [Suspect]
     Indication: HYPERTENSION
     Dosage: 5 MG, ORAL
     Route: 048
  3. GODAMED TAH(ACETYLSALICYLIC ACID) [Suspect]
     Indication: CEREBRAL DISORDER
     Dosage: 100 MG

REACTIONS (3)
  - CHEST PAIN [None]
  - DYSPNOEA [None]
  - TRANSIENT ISCHAEMIC ATTACK [None]
